FAERS Safety Report 9822256 (Version 1)
Quarter: 2014Q1

REPORT INFORMATION
  Report Type: Spontaneous
  Country: FR (occurrence: FR)
  Receive Date: 20140116
  Receipt Date: 20140116
  Transmission Date: 20141002
  Serious: Yes (Hospitalization)
  Sender: FDA-Public Use
  Company Number: FR-ASTELLAS-2014EU000246

PATIENT
  Age: 19 Year
  Sex: Male

DRUGS (8)
  1. ADVAGRAF [Suspect]
     Indication: LIVER TRANSPLANT
     Dosage: 2 MG UID/QD
     Route: 048
  2. CELLCEPT                           /01275102/ [Concomitant]
     Dosage: 2 DF, UNKNOWN/D
     Route: 065
  3. CELLCEPT                           /01275102/ [Concomitant]
     Dosage: 2 DF, UNKNOWN/D
     Route: 065
  4. DELURSAN [Concomitant]
     Dosage: UNK
     Route: 065
  5. MAGNESIUM [Concomitant]
     Dosage: UNK
     Route: 065
  6. VITAMIN B1 [Concomitant]
     Dosage: UNK
     Route: 065
  7. VITAMIN B6 [Concomitant]
     Dosage: UNK
     Route: 065
  8. UVEDOSE [Concomitant]
     Dosage: UNK
     Route: 065

REACTIONS (3)
  - Delusion [Not Recovered/Not Resolved]
  - Aggression [Not Recovered/Not Resolved]
  - Confusional state [Not Recovered/Not Resolved]
